FAERS Safety Report 19994232 (Version 1)
Quarter: 2021Q4

REPORT INFORMATION
  Report Type: Spontaneous
  Country: US (occurrence: US)
  Receive Date: 20211022
  Receipt Date: 20211022
  Transmission Date: 20220303
  Serious: Yes (Hospitalization)
  Sender: FDA-Public Use
  Company Number: None

PATIENT
  Sex: Female
  Weight: 106.36 kg

DRUGS (12)
  1. ASPIRIN [Suspect]
     Active Substance: ASPIRIN
     Dates: end: 20210817
  2. ALBUTEROL [Concomitant]
     Active Substance: ALBUTEROL
  3. Ativastatin [Concomitant]
  4. BACTRIM [Concomitant]
     Active Substance: SULFAMETHOXAZOLE\TRIMETHOPRIM
  5. DOXYCYCLINE [Concomitant]
     Active Substance: DOXYCYCLINE
  6. KEFLEX [Concomitant]
     Active Substance: CEPHALEXIN
  7. VITAMIN D [Concomitant]
     Active Substance: VITAMIN D NOS
  8. LEVOTHYROXINE [Suspect]
     Active Substance: LEVOTHYROXINE
  9. LOSARTAN [Concomitant]
     Active Substance: LOSARTAN
  10. METFORMIN [Concomitant]
     Active Substance: METFORMIN HYDROCHLORIDE
  11. TAMOXIFEN [Concomitant]
     Active Substance: TAMOXIFEN
  12. VENLAFAXINE [Concomitant]
     Active Substance: VENLAFAXINE HYDROCHLORIDE

REACTIONS (2)
  - Cellulitis [None]
  - Limb injury [None]

NARRATIVE: CASE EVENT DATE: 20210822
